FAERS Safety Report 15359596 (Version 4)
Quarter: 2019Q4

REPORT INFORMATION
  Report Type: Spontaneous
  Country: US (occurrence: US)
  Receive Date: 20180907
  Receipt Date: 20191220
  Transmission Date: 20200122
  Serious: Yes (Death, Hospitalization, Disabling, Other)
  Sender: FDA-Public Use
  Company Number: US-ASTRAZENECA-2018SF11934

PATIENT
  Age: 14367 Day
  Sex: Male
  Weight: 61.2 kg

DRUGS (23)
  1. NEXIUM 24HR [Suspect]
     Active Substance: ESOMEPRAZOLE MAGNESIUM
     Indication: GASTROOESOPHAGEAL REFLUX DISEASE
     Route: 048
     Dates: start: 2009, end: 2017
  2. HYDROMORPHONE [Concomitant]
     Active Substance: HYDROMORPHONE
  3. LORAZEPAM. [Concomitant]
     Active Substance: LORAZEPAM
  4. ONDANSETRON [Concomitant]
     Active Substance: ONDANSETRON
  5. DIVALPROEX SODIUM. [Concomitant]
     Active Substance: DIVALPROEX SODIUM
     Route: 065
  6. FLUOROURACIL. [Concomitant]
     Active Substance: FLUOROURACIL
  7. FOSAPREPITANT [Concomitant]
     Active Substance: FOSAPREPITANT
  8. NEXIUM 24HR [Suspect]
     Active Substance: ESOMEPRAZOLE MAGNESIUM
     Indication: GASTROOESOPHAGEAL REFLUX DISEASE
     Route: 048
     Dates: start: 20090101, end: 20170718
  9. NEXIUM 24HR [Suspect]
     Active Substance: ESOMEPRAZOLE MAGNESIUM
     Indication: DYSPEPSIA
     Route: 048
     Dates: start: 2009, end: 2017
  10. GUMMY VITAMIN [Concomitant]
     Indication: VITAMIN SUPPLEMENTATION
  11. OXYCODONE [Concomitant]
     Active Substance: OXYCODONE
  12. NEXIUM 24HR [Suspect]
     Active Substance: ESOMEPRAZOLE MAGNESIUM
     Indication: DYSPEPSIA
     Route: 048
     Dates: start: 20090101, end: 20170718
  13. OMEPRAZOLE. [Suspect]
     Active Substance: OMEPRAZOLE
     Dosage: 20 MG
     Route: 065
     Dates: start: 201501, end: 201502
  14. LEUCOVORIN. [Concomitant]
     Active Substance: LEUCOVORIN
  15. ACETAMINOPHEN. [Concomitant]
     Active Substance: ACETAMINOPHEN
  16. PROPOFOL. [Concomitant]
     Active Substance: PROPOFOL
  17. NEXIUM [Suspect]
     Active Substance: ESOMEPRAZOLE MAGNESIUM
     Dosage: 40 MG
     Route: 048
     Dates: start: 201203, end: 201501
  18. NEXIUM [Suspect]
     Active Substance: ESOMEPRAZOLE MAGNESIUM
     Dosage: 40 MG
     Route: 065
     Dates: start: 201505
  19. LANSOPRAZOLE. [Suspect]
     Active Substance: LANSOPRAZOLE
     Dosage: 30 MG
     Route: 065
     Dates: start: 201503, end: 201504
  20. OXALIPLATIN. [Concomitant]
     Active Substance: OXALIPLATIN
  21. LAMOTRIGINE. [Concomitant]
     Active Substance: LAMOTRIGINE
  22. METRONIDAZOLE. [Concomitant]
     Active Substance: METRONIDAZOLE
  23. IOPAMIDOL [Concomitant]
     Active Substance: IOPAMIDOL

REACTIONS (7)
  - Septic shock [Fatal]
  - Adenocarcinoma gastric [Fatal]
  - Renal failure [Unknown]
  - Nephrogenic anaemia [Unknown]
  - Acute kidney injury [Not Recovered/Not Resolved]
  - Pneumonia [Fatal]
  - Chronic kidney disease [Unknown]

NARRATIVE: CASE EVENT DATE: 20170710
